FAERS Safety Report 8309409-7 (Version None)
Quarter: 2012Q2

REPORT INFORMATION
  Report Type: 
  Country: None (occurrence: None)
  Receive Date: 20120424
  Receipt Date: 20120424
  Transmission Date: 20120825
  Serious: Yes (Other)
  Sender: FDA-Public Use
  Company Number: None

PATIENT
  Age: 74 Year
  Sex: Male
  Weight: 70.489 kg

DRUGS (3)
  1. TYLENOL [Concomitant]
  2. BENADRYL [Concomitant]
  3. RITUXAN [Suspect]
     Indication: LYMPHOMA
     Dosage: 700MG X1 IV
     Route: 042

REACTIONS (6)
  - HYPERHIDROSIS [None]
  - HYPOTENSION [None]
  - INCONTINENCE [None]
  - VOMITING [None]
  - INFUSION RELATED REACTION [None]
  - BACK PAIN [None]
